FAERS Safety Report 5574991-X (Version None)
Quarter: 2007Q4

REPORT INFORMATION
  Report Type: 
  Country: None (occurrence: None)
  Receive Date: 20071227
  Receipt Date: 20071218
  Transmission Date: 20080405
  Serious: Yes (Hospitalization)
  Sender: FDA-Public Use
  Company Number: B0500901A

PATIENT
  Age: 58 Year
  Sex: Male

DRUGS (4)
  1. AUGMENTIN '125' [Suspect]
     Dosage: 1G THREE TIMES PER DAY
     Route: 048
     Dates: start: 20071108, end: 20071116
  2. DOXORUBICIN HYDROCHLORIDE [Suspect]
     Dosage: 50ML SINGLE DOSE
     Route: 013
     Dates: start: 20071105, end: 20071105
  3. LIPIODOL [Suspect]
     Dosage: 4800MG SINGLE DOSE
     Route: 013
     Dates: start: 20071105, end: 20071105
  4. LESCOL [Suspect]
     Dosage: 80MG PER DAY
     Route: 048
     Dates: end: 20071113

REACTIONS (7)
  - ACUTE ABDOMEN [None]
  - BLOOD CREATINE PHOSPHOKINASE INCREASED [None]
  - CYTOLYTIC HEPATITIS [None]
  - MUSCULOSKELETAL STIFFNESS [None]
  - MYALGIA [None]
  - NEUTROPENIA [None]
  - RHABDOMYOLYSIS [None]
